FAERS Safety Report 16564986 (Version 2)
Quarter: 2019Q4

REPORT INFORMATION
  Report Type: Spontaneous
  Country: JP (occurrence: JP)
  Receive Date: 20190712
  Receipt Date: 20191003
  Transmission Date: 20200122
  Serious: Yes (Other)
  Sender: FDA-Public Use
  Company Number: PHJP2019JP008564

PATIENT

DRUGS (1)
  1. JADENU [Suspect]
     Active Substance: DEFERASIROX
     Indication: HAEMOCHROMATOSIS
     Dosage: SLIGHTLY LESS THAN 12 MG
     Route: 048

REACTIONS (3)
  - Cardiac failure [Unknown]
  - Serum ferritin increased [Unknown]
  - Therapeutic response decreased [Unknown]
